FAERS Safety Report 16159029 (Version 21)
Quarter: 2020Q1

REPORT INFORMATION
  Report Type: Report from Study
  Country: US (occurrence: US)
  Receive Date: 20190404
  Receipt Date: 20200316
  Transmission Date: 20200409
  Serious: Yes (Hospitalization)
  Sender: FDA-Public Use
  Company Number: PHHO2019US000774

PATIENT
  Age: 51 Year
  Sex: Male
  Weight: 95.8 kg

DRUGS (15)
  1. OXYCODONE [Concomitant]
     Active Substance: OXYCODONE
     Indication: ANALGESIC THERAPY
     Dosage: 10 MG, Q6 HR PRN
     Route: 048
     Dates: start: 20181220, end: 20190105
  2. INSULIN DETEMIR [Concomitant]
     Active Substance: INSULIN DETEMIR
     Indication: DIABETES MELLITUS
     Dosage: 10 U, TID
     Route: 058
     Dates: start: 20181220, end: 20190814
  3. INSULIN ASPART [Concomitant]
     Active Substance: INSULIN ASPART
     Indication: DIABETES MELLITUS
     Dosage: 0-6 UNITS 4 TIMES
     Route: 058
     Dates: start: 20191220
  4. MAGNESIUM SULFATE. [Concomitant]
     Active Substance: MAGNESIUM SULFATE
     Indication: HYPOMAGNESAEMIA
     Dosage: 2 G, ONCE/SINGLE
     Route: 042
     Dates: start: 20190313, end: 20190313
  5. ZORTRESS [Suspect]
     Active Substance: EVEROLIMUS
     Dosage: 4.5 MG, BID
     Route: 048
     Dates: start: 20190109, end: 20190910
  6. TACROLIMUS. [Suspect]
     Active Substance: TACROLIMUS
     Indication: LIVER TRANSPLANT
     Dosage: 3 MG, BID
     Route: 048
     Dates: start: 20181221
  7. AZATHIOPRINE. [Suspect]
     Active Substance: AZATHIOPRINE
     Indication: LIVER TRANSPLANT
     Dosage: 100 MG, BID
     Route: 048
     Dates: start: 20181224, end: 20190110
  8. MAGNESIUM SULFATE. [Concomitant]
     Active Substance: MAGNESIUM SULFATE
     Dosage: 400 MG, QD
     Route: 048
     Dates: start: 20190314, end: 20190314
  9. ZORTRESS [Suspect]
     Active Substance: EVEROLIMUS
     Indication: LIVER TRANSPLANT
     Dosage: NO TREATMENT
     Route: 065
  10. ROSUVASTATIN. [Concomitant]
     Active Substance: ROSUVASTATIN
     Indication: HYPERLIPIDAEMIA
     Dosage: 5 MG, QD
     Route: 048
     Dates: start: 20190207
  11. LANTUS [Concomitant]
     Active Substance: INSULIN GLARGINE
     Indication: DIABETES MELLITUS
     Dosage: 25 U, TID
     Route: 065
     Dates: start: 20181225, end: 20190321
  12. PREDNISONE. [Concomitant]
     Active Substance: PREDNISONE
     Indication: LIVER TRANSPLANT
     Dosage: 5 MG, QD
     Route: 048
     Dates: start: 20181226, end: 20190320
  13. AMLODIPINE [Concomitant]
     Active Substance: AMLODIPINE BESYLATE
     Indication: HYPERTENSION
     Dosage: 5 MG, QD
     Route: 048
     Dates: start: 20190206
  14. PREDNISONE. [Concomitant]
     Active Substance: PREDNISONE
     Indication: PROPHYLAXIS
  15. INSULIN LISPRO [Concomitant]
     Active Substance: INSULIN LISPRO
     Indication: DIABETES PROPHYLAXIS
     Dosage: 30 U, TID
     Route: 058
     Dates: start: 20181220, end: 20190313

REACTIONS (27)
  - Flank pain [Recovered/Resolved]
  - Diarrhoea [Recovered/Resolved]
  - Sepsis [Recovering/Resolving]
  - Flank pain [Recovering/Resolving]
  - Hypomagnesaemia [Recovering/Resolving]
  - Chronic kidney disease [Recovering/Resolving]
  - Pyuria [Not Recovered/Not Resolved]
  - Dyspnoea [Recovered/Resolved]
  - Infection [Recovering/Resolving]
  - Pyelonephritis [Recovering/Resolving]
  - Hydronephrosis [Recovering/Resolving]
  - Melaena [Recovering/Resolving]
  - Hyperkalaemia [Recovering/Resolving]
  - Chondrocalcinosis pyrophosphate [Recovered/Resolved with Sequelae]
  - Ureterolithiasis [Recovering/Resolving]
  - Nephrolithiasis [Not Recovered/Not Resolved]
  - Acute kidney injury [Recovering/Resolving]
  - Hyperkalaemia [Recovered/Resolved with Sequelae]
  - Abdominal pain [Not Recovered/Not Resolved]
  - Candida infection [Recovered/Resolved]
  - Vomiting [Recovered/Resolved]
  - Acute kidney injury [Recovered/Resolved]
  - Back pain [Recovering/Resolving]
  - Urinary tract infection [Recovering/Resolving]
  - Abdominal pain [Recovered/Resolved]
  - Anaemia [Recovering/Resolving]
  - Syncope [Recovering/Resolving]

NARRATIVE: CASE EVENT DATE: 20190102
